FAERS Safety Report 4487601-X (Version None)
Quarter: 2004Q4

REPORT INFORMATION
  Report Type: 
  Country: None (occurrence: None)
  Receive Date: 20041025
  Receipt Date: 20041013
  Transmission Date: 20050328
  Serious: Yes (Hospitalization)
  Sender: FDA-Public Use
  Company Number: HQWYE549121APR04

PATIENT
  Age: 46 Year
  Sex: Male
  Weight: 82.63 kg

DRUGS (21)
  1. RAPAMUNE [Suspect]
     Indication: PROPHYLAXIS AGAINST TRANSPLANT REJECTION
     Dosage: SEEN IMAGE
     Route: 048
     Dates: start: 20020404, end: 20040405
  2. RAPAMUNE [Suspect]
     Indication: PROPHYLAXIS AGAINST TRANSPLANT REJECTION
     Dosage: SEEN IMAGE
     Route: 048
     Dates: start: 20040406
  3. MYCOPHENOLATE MOFETIL (MYCOPHENOLATE MOFETIL) [Concomitant]
  4. PREDNISONE [Concomitant]
  5. ATORVASTATIN (ATORVASTATIN) [Concomitant]
  6. CLONIDINE [Concomitant]
  7. ATENOLOL [Concomitant]
  8. DOXAZOSIN (DOXAZOSIN) [Concomitant]
  9. HYDROCHLOROTHIAZIDE [Concomitant]
  10. CORTISONE (CORTISONE) [Concomitant]
  11. RANITIDINE [Concomitant]
  12. GLYBURIDE [Concomitant]
  13. CALCIUM CARBONATE (CALCIUM CARBONATE) [Concomitant]
  14. BENZOYL PEROXIDE (BENZOYL PEROXIDE) [Concomitant]
  15. VIAGRA [Concomitant]
  16. ERYTHROPOIETIN (ERYTHROPOIETIN) [Concomitant]
  17. NPH INSULIN [Concomitant]
  18. FUROSEMIDE [Concomitant]
  19. ARANESP [Concomitant]
  20. MULTIVITAMINS (ASCORBIC ACID/ERGOCALCIFEROL/FOLIC ACID/NICOTINAMIDE/PA [Concomitant]
  21. TYLENOL [Concomitant]

REACTIONS (4)
  - ANAEMIA [None]
  - CONDITION AGGRAVATED [None]
  - GLOMERULONEPHRITIS FOCAL [None]
  - HYPERTENSION [None]
